FAERS Safety Report 7943286-9 (Version None)
Quarter: 2011Q4

REPORT INFORMATION
  Report Type: 
  Country: None (occurrence: None)
  Receive Date: 20111128
  Receipt Date: 20111121
  Transmission Date: 20120403
  Serious: No
  Sender: FDA-Public Use
  Company Number: US-PFIZER INC-2011285714

PATIENT
  Age: 39 Year
  Sex: Female

DRUGS (1)
  1. EPIPEN JR. [Suspect]
     Dosage: 1 DF, UNK
     Dates: start: 20111117, end: 20111117

REACTIONS (2)
  - INJURY ASSOCIATED WITH DEVICE [None]
  - INJECTION SITE PAIN [None]
